FAERS Safety Report 9030995 (Version 2)
Quarter: 2013Q1

REPORT INFORMATION
  Report Type: Spontaneous
  Country: JP (occurrence: JP)
  Receive Date: 20130123
  Receipt Date: 20130302
  Transmission Date: 20140127
  Serious: Yes (Other)
  Sender: FDA-Public Use
  Company Number: PHHY2013JP006092

PATIENT
  Age: 71 Year
  Sex: Female

DRUGS (5)
  1. OXALIPLATIN [Suspect]
     Indication: RECTAL CANCER
     Route: 042
     Dates: start: 20101220
  2. CAPECITABINE [Concomitant]
  3. BEVACIZUMAB [Concomitant]
  4. GLUCOSE [Concomitant]
  5. DEXAMETHASONE [Concomitant]

REACTIONS (1)
  - Vascular pain [Recovering/Resolving]
